FAERS Safety Report 15645281 (Version 2)
Quarter: 2018Q4

REPORT INFORMATION
  Report Type: Spontaneous
  Country: US (occurrence: US)
  Receive Date: 20181121
  Receipt Date: 20181231
  Transmission Date: 20190205
  Serious: Yes (Hospitalization)
  Sender: FDA-Public Use
  Company Number: US-PFIZER INC-2018472034

PATIENT
  Age: 72 Year
  Sex: Female
  Weight: 73.3 kg

DRUGS (11)
  1. OMEPRAZOLE. [Concomitant]
     Active Substance: OMEPRAZOLE
     Indication: HIATUS HERNIA
     Dosage: 40 MG, UNK
  2. LISINOPRIL/HCTZ [Concomitant]
     Active Substance: HYDROCHLOROTHIAZIDE\LISINOPRIL
     Indication: HYPERTENSION
     Dosage: UNK (HYDROCHLOROTHIAZIDE: 12.5MG/LISINOPRIL: 10MG)
  3. OXYCONTIN [Concomitant]
     Active Substance: OXYCODONE HYDROCHLORIDE
     Indication: HEREDITARY MOTOR AND SENSORY NEUROPATHY
  4. AMITIZA [Concomitant]
     Active Substance: LUBIPROSTONE
     Indication: GASTROINTESTINAL DISORDER
     Dosage: 24 UG, UNK
  5. LYRICA [Suspect]
     Active Substance: PREGABALIN
     Indication: HEREDITARY MOTOR AND SENSORY NEUROPATHY
  6. LYRICA [Suspect]
     Active Substance: PREGABALIN
     Indication: FIBROMYALGIA
     Dosage: 200 MG, 3X/DAY
     Route: 048
  7. FLUOXETINE [Concomitant]
     Active Substance: FLUOXETINE HYDROCHLORIDE
     Dosage: UNK
  8. MIRTAZAPINE. [Concomitant]
     Active Substance: MIRTAZAPINE
     Indication: SLEEP DISORDER
     Dosage: 30 MG, UNK
  9. OXYCONTIN [Concomitant]
     Active Substance: OXYCODONE HYDROCHLORIDE
     Indication: PAIN
     Dosage: 15 MG, 2X/DAY (EVERY 12HR)
  10. ACETAMINOPHEN;HYDROCODONE [Concomitant]
     Active Substance: ACETAMINOPHEN\HYDROCODONE BITARTRATE
     Indication: PAIN
     Dosage: UNK (HYDROCODONE: 7.5MG/ACETAMINOPHEN:325MG)
  11. ACETAMINOPHEN;HYDROCODONE [Concomitant]
     Active Substance: ACETAMINOPHEN\HYDROCODONE BITARTRATE
     Indication: HEREDITARY MOTOR AND SENSORY NEUROPATHY

REACTIONS (4)
  - Diarrhoea [Recovered/Resolved]
  - Condition aggravated [Recovered/Resolved]
  - Neuralgia [Recovered/Resolved]
  - Tremor [Recovered/Resolved]

NARRATIVE: CASE EVENT DATE: 20181111
